FAERS Safety Report 23881063 (Version 1)
Quarter: 2024Q2

REPORT INFORMATION
  Report Type: Spontaneous
  Country: IE (occurrence: IE)
  Receive Date: 20240521
  Receipt Date: 20240521
  Transmission Date: 20240716
  Serious: Yes (Hospitalization, Other)
  Sender: FDA-Public Use
  Company Number: IE-SUN PHARMACEUTICAL INDUSTRIES LTD-2024R1-446718

PATIENT
  Age: 68 Year
  Sex: Female

DRUGS (9)
  1. METHOTREXATE [Suspect]
     Active Substance: METHOTREXATE
     Indication: Product used for unknown indication
     Route: 065
  2. APREMILAST [Suspect]
     Active Substance: APREMILAST
     Indication: Product used for unknown indication
     Route: 065
  3. ADALIMUMAB [Suspect]
     Active Substance: ADALIMUMAB\ISOPROPYL ALCOHOL
     Indication: Product used for unknown indication
     Route: 065
  4. USTEKINUMAB [Suspect]
     Active Substance: USTEKINUMAB
     Indication: Product used for unknown indication
     Dosage: UNK
     Route: 065
  5. SECUKINUMAB [Suspect]
     Active Substance: SECUKINUMAB
     Indication: Product used for unknown indication
     Dosage: UNK
     Route: 065
  6. BRODALUMAB [Suspect]
     Active Substance: BRODALUMAB
     Indication: Product used for unknown indication
     Dosage: UNK
     Route: 065
  7. IXEKIZUMAB [Suspect]
     Active Substance: IXEKIZUMAB
     Indication: Product used for unknown indication
     Dosage: UNK
     Route: 065
  8. RISANKIZUMAB [Suspect]
     Active Substance: RISANKIZUMAB
     Indication: Product used for unknown indication
     Route: 065
  9. FILGOTINIB [Suspect]
     Active Substance: FILGOTINIB
     Indication: Product used for unknown indication
     Dosage: UNK
     Route: 065

REACTIONS (4)
  - Treatment failure [Unknown]
  - Liver function test abnormal [Unknown]
  - Condition aggravated [Unknown]
  - Cellulitis [Unknown]
